FAERS Safety Report 25126495 (Version 4)
Quarter: 2025Q2

REPORT INFORMATION
  Report Type: Spontaneous
  Country: GB (occurrence: GB)
  Receive Date: 20250327
  Receipt Date: 20250618
  Transmission Date: 20250716
  Serious: Yes (Hospitalization, Other)
  Sender: CELLTRION
  Company Number: GB-CELLTRION INC.-2025GB005002

PATIENT

DRUGS (2)
  1. INFLIXIMAB [Suspect]
     Active Substance: INFLIXIMAB
     Indication: Crohn^s disease
     Route: 058
  2. INFLIXIMAB [Suspect]
     Active Substance: INFLIXIMAB
     Indication: Colitis ulcerative
     Dosage: 120 MG EOW
     Route: 058
     Dates: start: 20250218

REACTIONS (5)
  - Lethargy [Not Recovered/Not Resolved]
  - Colitis ulcerative [Not Recovered/Not Resolved]
  - Fatigue [Not Recovered/Not Resolved]
  - Condition aggravated [Unknown]
  - Drug ineffective [Not Recovered/Not Resolved]
